FAERS Safety Report 15071007 (Version 1)
Quarter: 2018Q2

REPORT INFORMATION
  Report Type: Report from Study
  Country: US (occurrence: US)
  Receive Date: 20180626
  Receipt Date: 20180626
  Transmission Date: 20180711
  Serious: No
  Sender: FDA-Public Use
  Company Number: US-AMGEN-USASL2014087098

PATIENT
  Sex: Female
  Weight: 78.01 kg

DRUGS (1)
  1. PROLIA [Suspect]
     Active Substance: DENOSUMAB
     Indication: OSTEOPOROSIS POSTMENOPAUSAL
     Route: 065

REACTIONS (5)
  - Gastrointestinal disorder [Unknown]
  - Anxiety [Unknown]
  - Hypertension [Unknown]
  - Vitamin D deficiency [Unknown]
  - Mobility decreased [Unknown]
